FAERS Safety Report 6708117-3 (Version None)
Quarter: 2010Q2

REPORT INFORMATION
  Report Type: 
  Country: None (occurrence: None)
  Receive Date: 20100503
  Receipt Date: 20090311
  Transmission Date: 20101027
  Serious: No
  Sender: FDA-Public Use
  Company Number: US-ASTRAZENECA-2009UW06381

PATIENT
  Sex: Female

DRUGS (1)
  1. NEXIUM [Suspect]
     Dosage: 40 MG
     Route: 048
     Dates: start: 20090310

REACTIONS (2)
  - BACK PAIN [None]
  - OVERDOSE [None]
